FAERS Safety Report 14689464 (Version 1)
Quarter: 2018Q1

REPORT INFORMATION
  Report Type: Spontaneous
  Country: US (occurrence: US)
  Receive Date: 20180328
  Receipt Date: 20180328
  Transmission Date: 20180509
  Serious: No
  Sender: FDA-Public Use
  Company Number: US-MYLANLABS-2018M1014914

PATIENT
  Age: 71 Year
  Sex: Male

DRUGS (1)
  1. NITROGLYCERIN TRANSDERMAL DELIVERY SYSTEM [Suspect]
     Active Substance: NITROGLYCERIN
     Indication: VASCULAR GRAFT
     Dosage: UNK
     Dates: start: 201708

REACTIONS (1)
  - Application site erythema [Unknown]

NARRATIVE: CASE EVENT DATE: 201708
